FAERS Safety Report 21158850 (Version 1)
Quarter: 2022Q3

REPORT INFORMATION
  Report Type: Report from Study
  Country: US (occurrence: US)
  Receive Date: 20220802
  Receipt Date: 20220802
  Transmission Date: 20221026
  Serious: No
  Sender: FDA-Public Use
  Company Number: US-Ipsen Biopharmaceuticals, Inc.-2022-21491

PATIENT
  Sex: Male

DRUGS (1)
  1. DYSPORT [Suspect]
     Active Substance: ABOBOTULINUMTOXINA
     Indication: Muscle spasticity
     Dosage: INJECTIONS IN EVERY 90 DAYS
     Route: 030
     Dates: end: 202108

REACTIONS (1)
  - Drug ineffective [Unknown]
